FAERS Safety Report 9393647 (Version 1)
Quarter: 2013Q3

REPORT INFORMATION
  Report Type: Spontaneous
  Country: JP (occurrence: JP)
  Receive Date: 20130710
  Receipt Date: 20130710
  Transmission Date: 20140515
  Serious: No
  Sender: FDA-Public Use
  Company Number: JP-GLAXOSMITHKLINE-B0903986A

PATIENT
  Age: 60 Year
  Sex: Male

DRUGS (3)
  1. SEREVENT DISKUS [Suspect]
     Indication: CHRONIC OBSTRUCTIVE PULMONARY DISEASE
     Dosage: 50MCG TWICE PER DAY
     Route: 055
     Dates: start: 20130608, end: 20130626
  2. MEPTIN [Suspect]
     Route: 055
     Dates: start: 20130608, end: 20130626
  3. FLAVERIC [Concomitant]
     Route: 048
     Dates: start: 20130608, end: 201306

REACTIONS (8)
  - Nausea [Unknown]
  - Vomiting [Unknown]
  - Phonological disorder [Unknown]
  - Headache [Unknown]
  - Somnolence [Unknown]
  - Dyspepsia [Unknown]
  - Malaise [Unknown]
  - Dysgeusia [Unknown]
